FAERS Safety Report 12576165 (Version 2)
Quarter: 2016Q3

REPORT INFORMATION
  Report Type: Spontaneous
  Country: US (occurrence: US)
  Receive Date: 20160720
  Receipt Date: 20160720
  Transmission Date: 20161109
  Serious: Yes (Other)
  Sender: FDA-Public Use
  Company Number: US-TEVA-672889USA

PATIENT
  Sex: Female

DRUGS (10)
  1. COPAXONE [Suspect]
     Active Substance: GLATIRAMER ACETATE
     Indication: MULTIPLE SCLEROSIS
     Route: 058
  2. COPAXONE [Suspect]
     Active Substance: GLATIRAMER ACETATE
     Dosage: 8.5714 MILLIGRAM DAILY;
     Route: 058
     Dates: start: 200909
  3. PIOGLITAZONE. [Concomitant]
     Active Substance: PIOGLITAZONE
  4. JANUVIA [Concomitant]
     Active Substance: SITAGLIPTIN PHOSPHATE
  5. GABAPENTIN. [Concomitant]
     Active Substance: GABAPENTIN
  6. METOPROLOL. [Concomitant]
     Active Substance: METOPROLOL
  7. ALENDRONATE [Concomitant]
     Active Substance: ALENDRONATE SODIUM
  8. METFORMIN [Concomitant]
     Active Substance: METFORMIN HYDROCHLORIDE
  9. OXYBUTYNIN [Concomitant]
     Active Substance: OXYBUTYNIN
  10. CRESTOR [Concomitant]
     Active Substance: ROSUVASTATIN CALCIUM

REACTIONS (2)
  - Hospitalisation [Not Recovered/Not Resolved]
  - Hip arthroplasty [Not Recovered/Not Resolved]

NARRATIVE: CASE EVENT DATE: 2016
